FAERS Safety Report 8022363-0 (Version None)
Quarter: 2012Q1

REPORT INFORMATION
  Report Type: 
  Country: None (occurrence: None)
  Receive Date: 20120104
  Receipt Date: 20111226
  Transmission Date: 20120608
  Serious: Yes (Hospitalization)
  Sender: FDA-Public Use
  Company Number: US-ACTELION-A-NJ2011-58602

PATIENT

DRUGS (3)
  1. TRACLEER [Suspect]
     Indication: PULMONARY ARTERIAL HYPERTENSION
     Dosage: 62.5 MG, BID
     Route: 048
     Dates: start: 20110921
  2. COUMADIN [Concomitant]
  3. REVATIO [Concomitant]

REACTIONS (3)
  - DIALYSIS [None]
  - RENAL FAILURE [None]
  - FLUID RETENTION [None]
